FAERS Safety Report 7659261-8 (Version None)
Quarter: 2011Q3

REPORT INFORMATION
  Report Type: 
  Country: None (occurrence: None)
  Receive Date: 20110805
  Receipt Date: 20110803
  Transmission Date: 20111222
  Serious: Yes (Hospitalization)
  Sender: FDA-Public Use
  Company Number: IT-ROCHE-786262

PATIENT
  Sex: Female

DRUGS (1)
  1. BEVACIZUMAB [Suspect]
     Indication: RECTAL CANCER
     Dosage: CYCLE
     Route: 042
     Dates: start: 20090403, end: 20090518

REACTIONS (2)
  - TREMOR [None]
  - CENTRAL NERVOUS SYSTEM LESION [None]
